FAERS Safety Report 6517470-5 (Version None)
Quarter: 2009Q4

REPORT INFORMATION
  Report Type: 
  Country: None (occurrence: None)
  Receive Date: 20091224
  Receipt Date: 20091221
  Transmission Date: 20100525
  Serious: Yes (Life-Threatening, Hospitalization)
  Sender: FDA-Public Use
  Company Number: UA-ELI_LILLY_AND_COMPANY-UA200912001380

PATIENT
  Sex: Male
  Weight: 67 kg

DRUGS (12)
  1. PEMETREXED [Suspect]
     Indication: NON-SMALL CELL LUNG CANCER
     Dosage: 685 MG, EVERY 3 WEEKS
     Route: 042
     Dates: start: 20091009
  2. CISPLATIN [Suspect]
     Indication: NON-SMALL CELL LUNG CANCER
     Dosage: 68.5 MG, EVERY 3 WEEKS
     Route: 042
     Dates: start: 20091009
  3. AG-013736(AXITINIB) [Suspect]
     Indication: NON-SMALL CELL LUNG CANCER
     Dosage: 5 MG, 2/D
     Route: 048
     Dates: start: 20091009, end: 20091013
  4. AG-013736(AXITINIB) [Suspect]
     Dosage: UNK, UNK
     Dates: start: 20091106, end: 20091111
  5. DEXAMETHASONE TAB [Concomitant]
     Indication: PREMEDICATION
     Dosage: 16 MG, DAILY (1/D)
     Route: 042
     Dates: start: 20091113, end: 20091113
  6. GLUCOSE [Concomitant]
     Indication: PREMEDICATION
     Dosage: 400 ML, DAILY (1/D)
     Route: 042
     Dates: start: 20091113, end: 20091113
  7. INFESOL 40 [Concomitant]
     Indication: PREMEDICATION
     Dosage: 500 ML, DAILY (1/D)
     Route: 042
     Dates: start: 20091113, end: 20091113
  8. ASCORBIC ACID [Concomitant]
     Indication: PREMEDICATION
     Dosage: 4 ML, DAILY (1/D)
     Route: 042
     Dates: start: 20091113, end: 20091113
  9. ASCORBIC ACID [Concomitant]
     Dates: start: 20091101
  10. PYRIDOXINE [Concomitant]
     Indication: PREMEDICATION
     Dosage: 4 ML, DAILY (1/D)
     Route: 042
     Dates: start: 20091113, end: 20091113
  11. ONDASETRON [Concomitant]
     Indication: PREMEDICATION
     Dosage: 8 MG, DAILY (1/D)
     Route: 042
     Dates: start: 20091113, end: 20091113
  12. MEDRONIC ACID [Concomitant]
     Indication: PREMEDICATION
     Dosage: 10 ML, DAILY (1/D)
     Route: 042
     Dates: start: 20091113, end: 20091113

REACTIONS (1)
  - DRUG TOXICITY [None]
